FAERS Safety Report 12585254 (Version 1)
Quarter: 2016Q3

REPORT INFORMATION
  Report Type: Spontaneous
  Country: US (occurrence: US)
  Receive Date: 20160723
  Receipt Date: 20160723
  Transmission Date: 20161109
  Serious: No
  Sender: FDA-Public Use
  Company Number: US-009507513-1607USA006884

PATIENT

DRUGS (1)
  1. BELSOMRA [Suspect]
     Active Substance: SUVOREXANT
     Dosage: TABLET 5MG 30 CT (3X10UU BLISTER CARD) 00006000530
     Route: 048

REACTIONS (3)
  - Product quality control issue [Unknown]
  - No adverse event [Unknown]
  - Drug dose omission [Unknown]
